FAERS Safety Report 4724054-8 (Version None)
Quarter: 2005Q3

REPORT INFORMATION
  Report Type: 
  Country: None (occurrence: None)
  Receive Date: 20050722
  Receipt Date: 20050711
  Transmission Date: 20060218
  Serious: Yes (Other)
  Sender: FDA-Public Use
  Company Number: SE-2004-035068

PATIENT
  Sex: Female

DRUGS (1)
  1. ULTRAVIST (PHARMACY BULK) [Suspect]
     Indication: X-RAY LIMB
     Dates: start: 20030904, end: 20030904

REACTIONS (2)
  - ANAPHYLACTIC SHOCK [None]
  - HYPERSENSITIVITY [None]
